FAERS Safety Report 9187948 (Version 1)
Quarter: 2013Q1

REPORT INFORMATION
  Report Type: Spontaneous
  Country: US (occurrence: US)
  Receive Date: 20130325
  Receipt Date: 20130325
  Transmission Date: 20140127
  Serious: No
  Sender: FDA-Public Use
  Company Number: US-MYLANLABS-2012S1020029

PATIENT
  Age: 83 Year
  Sex: Female

DRUGS (16)
  1. FENTANYL TRANSDERMAL SYSTEM [Suspect]
     Indication: BACK PAIN
     Dosage: Q72H
     Route: 062
     Dates: start: 2009
  2. FENTANYL TRANSDERMAL SYSTEM [Suspect]
     Indication: PAIN
     Dosage: Q72H
     Route: 062
     Dates: start: 2009
  3. FENTANYL TRANSDERMAL SYSTEM [Suspect]
     Indication: ARTHRITIS
     Dosage: Q72H
     Route: 062
     Dates: start: 2009
  4. FENTANYL TRANSDERMAL SYSTEM [Suspect]
     Indication: FIBROMYALGIA
     Dosage: Q72H
     Route: 062
     Dates: start: 2009
  5. CYMBALTA [Concomitant]
     Indication: DEPRESSION
  6. NEXIUM [Concomitant]
     Indication: ABDOMINAL OPERATION
  7. PREVACID [Concomitant]
     Indication: ABDOMINAL OPERATION
  8. NORVASC [Concomitant]
     Indication: BLOOD PRESSURE INCREASED
  9. LISINOPRIL [Concomitant]
     Indication: BLOOD PRESSURE INCREASED
  10. LOPRESSOR [Concomitant]
     Indication: BLOOD PRESSURE INCREASED
  11. LASIX [Concomitant]
     Indication: FLUID RETENTION
  12. MOBIC [Concomitant]
     Indication: ARTHRITIS
  13. LYRICA [Concomitant]
     Indication: FIBROMYALGIA
  14. SYNTHROID [Concomitant]
     Indication: HYPOTHYROIDISM
  15. ZOCOR [Concomitant]
     Indication: BLOOD CHOLESTEROL INCREASED
  16. XANAX [Concomitant]
     Indication: DEPRESSION

REACTIONS (2)
  - Drug withdrawal syndrome [Not Recovered/Not Resolved]
  - Tinnitus [Not Recovered/Not Resolved]
